FAERS Safety Report 24977567 (Version 1)
Quarter: 2025Q1

REPORT INFORMATION
  Report Type: Spontaneous
  Country: US (occurrence: US)
  Receive Date: 20250217
  Receipt Date: 20250217
  Transmission Date: 20250408
  Serious: No
  Sender: MYLAN
  Company Number: US-MYLANLABS-2025M1012170

PATIENT
  Sex: Female
  Weight: 67.59 kg

DRUGS (2)
  1. ESTRADIOL TRANSDERMAL SYSTEM [Suspect]
     Active Substance: ESTRADIOL
     Indication: Oophorectomy
     Dosage: 0.1 MILLIGRAM, QD (TWICE WEEKLY)
     Route: 062
  2. NORCO [Concomitant]
     Active Substance: ACETAMINOPHEN\HYDROCODONE BITARTRATE
     Route: 065

REACTIONS (8)
  - Hot flush [Unknown]
  - Application site urticaria [Unknown]
  - Malabsorption from application site [Unknown]
  - Application site pain [Unknown]
  - Application site pruritus [Unknown]
  - Off label use [Unknown]
  - Drug ineffective [Unknown]
  - Wrong technique in product usage process [Unknown]
